FAERS Safety Report 7321258-5 (Version None)
Quarter: 2011Q1

REPORT INFORMATION
  Report Type: 
  Country: None (occurrence: None)
  Receive Date: 20110228
  Receipt Date: 20110224
  Transmission Date: 20110831
  Serious: Yes (Other)
  Sender: FDA-Public Use
  Company Number: US-ABBOTT-11P-163-0696944-00

PATIENT
  Sex: Female
  Weight: 69.008 kg

DRUGS (10)
  1. AMLODIPINE [Concomitant]
     Indication: HYPERTENSION
     Route: 048
  2. FISH OIL [Concomitant]
     Indication: SUPPLEMENTATION THERAPY
     Dates: end: 20100101
  3. FISH OIL [Concomitant]
     Route: 048
     Dates: start: 20100101
  4. HUMIRA [Suspect]
     Indication: RHEUMATOID ARTHRITIS
     Route: 058
     Dates: start: 20100401
  5. VYTORIN [Concomitant]
     Indication: BLOOD CHOLESTEROL INCREASED
     Dosage: 10/20; 1 IN 1 DAY
     Route: 048
  6. CALCIUM WITH VITAMIN D [Concomitant]
     Indication: MINERAL SUPPLEMENTATION
     Dosage: UNKNOWN STRENGTH
     Route: 048
  7. FOLIC ACID [Concomitant]
     Indication: VITAMIN SUPPLEMENTATION
     Dosage: UNKNOW STRENGTH
     Route: 048
  8. METOPROLOL [Concomitant]
     Indication: HYPERTENSION
     Route: 048
  9. METHOTREXATE [Concomitant]
     Indication: RHEUMATOID ARTHRITIS
     Dosage: 8; 4 PM FOLLOWING 4 TAB; 1 WEEKS
     Route: 048
  10. BENICAR [Concomitant]
     Indication: HYPERTENSION
     Route: 048

REACTIONS (4)
  - IRIS ATROPHY [None]
  - HEADACHE [None]
  - EYE PAIN [None]
  - HYPERMETROPIA [None]
